FAERS Safety Report 8415351-3 (Version None)
Quarter: 2012Q2

REPORT INFORMATION
  Report Type: 
  Country: None (occurrence: None)
  Receive Date: 20120606
  Receipt Date: 20120530
  Transmission Date: 20120825
  Serious: Yes (Hospitalization)
  Sender: FDA-Public Use
  Company Number: PHHY2012PL046647

PATIENT
  Age: 16 Year
  Sex: Female

DRUGS (2)
  1. CYCLOSPORINE [Suspect]
     Dosage: 100 MG/ DAY
     Route: 042
  2. ANTIBACTERIALS [Concomitant]

REACTIONS (5)
  - INFECTIOUS MONONUCLEOSIS [None]
  - DERMATITIS HERPETIFORMIS [None]
  - PANCYTOPENIA [None]
  - LIVER INJURY [None]
  - LYMPHADENOPATHY [None]
